FAERS Safety Report 8315982 (Version 2)
Quarter: 2012Q4

REPORT INFORMATION
  Report Type: Report from Study
  Country: CA (occurrence: CA)
  Receive Date: 20111229
  Receipt Date: 20121119
  Transmission Date: 20130627
  Serious: Yes (Hospitalization, Other)
  Sender: FDA-Public Use
  Company Number: CA-SHIRE-ALL1-2011-05070

PATIENT
  Age: 14 Year
  Sex: Male
  Weight: 28.2 kg

DRUGS (2)
  1. IDURSULFASE [Suspect]
     Indication: MUCOPOLYSACCHARIDOSIS II
     Dosage: 18 mg, 1x/week (3-9.0 viles)
     Route: 042
  2. IDURSULFASE [Suspect]
     Dosage: 14.3 mg, 1x/week
     Route: 041
     Dates: start: 20080813

REACTIONS (3)
  - Agitation [Recovered/Resolved]
  - Insomnia [Unknown]
  - Restlessness [Recovered/Resolved]
